FAERS Safety Report 4546092-0 (Version None)
Quarter: 2005Q1

REPORT INFORMATION
  Report Type: 
  Country: None (occurrence: None)
  Receive Date: 20050106
  Receipt Date: 20041229
  Transmission Date: 20050727
  Serious: Yes (Hospitalization)
  Sender: FDA-Public Use
  Company Number: US-BRISTOL-MYERS SQUIBB COMPANY-12809232

PATIENT
  Age: 58 Year
  Sex: Female
  Weight: 82 kg

DRUGS (3)
  1. SERZONE [Suspect]
     Indication: MEDICATION ERROR
     Route: 048
     Dates: start: 20000101, end: 20001101
  2. SEROQUEL [Suspect]
     Indication: SCHIZOPHRENIA
  3. SEROQUEL [Suspect]
     Indication: PSYCHOTIC DISORDER

REACTIONS (11)
  - ABDOMINAL PAIN [None]
  - ABDOMINAL PAIN UPPER [None]
  - CONFUSIONAL STATE [None]
  - HALLUCINATION [None]
  - LIVER ABSCESS [None]
  - LIVER FUNCTION TEST ABNORMAL [None]
  - MEDICATION ERROR [None]
  - NAUSEA [None]
  - PSYCHIATRIC SYMPTOM [None]
  - PSYCHOTIC DISORDER [None]
  - VOMITING [None]
